FAERS Safety Report 13571637 (Version 3)
Quarter: 2021Q2

REPORT INFORMATION
  Report Type: Spontaneous
  Country: DE (occurrence: DE)
  Receive Date: 20170523
  Receipt Date: 20210527
  Transmission Date: 20210716
  Serious: Yes (Other)
  Sender: FDA-Public Use
  Company Number: DE-ACCORD-051663

PATIENT
  Age: 12 Month
  Sex: Male
  Weight: 2.33 kg

DRUGS (9)
  1. PROPAFENONE. [Concomitant]
     Active Substance: PROPAFENONE
     Indication: TACHYARRHYTHMIA
  2. CARBAMAZEPINE. [Suspect]
     Active Substance: CARBAMAZEPINE
     Indication: FOETAL EXPOSURE DURING PREGNANCY
     Dosage: 1000 MG/D
     Route: 064
     Dates: start: 20160522, end: 20170117
  3. ZONEGRAN [Suspect]
     Active Substance: ZONISAMIDE
     Indication: EPILEPSY
     Route: 064
     Dates: start: 20160508, end: 20170117
  4. CARBAMAZEPINE. [Suspect]
     Active Substance: CARBAMAZEPINE
     Indication: EPILEPSY
     Dosage: 1000 MG/D
     Route: 064
     Dates: start: 20160508, end: 20170117
  5. AMIODARONE [Concomitant]
     Active Substance: AMIODARONE
     Indication: HYPOTENSION
     Dates: start: 201701
  6. ILOPROST/ILOPROST TROMETAMINE/ILOPROST TROMETAMOL [Concomitant]
     Active Substance: ILOPROST TROMETHAMINE
     Indication: PULMONARY HYPERTENSION
  7. ZONEGRAN [Suspect]
     Active Substance: ZONISAMIDE
     Indication: FOETAL EXPOSURE DURING PREGNANCY
     Route: 064
     Dates: start: 20160522, end: 20170117
  8. LEVETIRACETAM. [Suspect]
     Active Substance: LEVETIRACETAM
     Indication: EPILEPSY
     Dosage: 1000 MG/D
     Route: 064
     Dates: start: 20160508, end: 20170117
  9. LEVETIRACETAM. [Suspect]
     Active Substance: LEVETIRACETAM
     Indication: FOETAL EXPOSURE DURING PREGNANCY
     Dosage: 1000 MG/D
     Route: 064
     Dates: start: 20160522, end: 20170117

REACTIONS (10)
  - Respiratory disorder neonatal [Recovered/Resolved]
  - Neonatal hypotension [Recovered/Resolved]
  - Foetal exposure during pregnancy [Unknown]
  - Tachyarrhythmia [Not Recovered/Not Resolved]
  - Small for dates baby [Unknown]
  - Premature baby [Recovered/Resolved]
  - Pulmonary hypertension [Recovered/Resolved]
  - Disseminated intravascular coagulation [Recovered/Resolved]
  - Low birth weight baby [Unknown]
  - Neonatal pneumonia [Recovered/Resolved]

NARRATIVE: CASE EVENT DATE: 2016
